FAERS Safety Report 9298602 (Version 1)
Quarter: 2013Q2

REPORT INFORMATION
  Report Type: Report from Study
  Country: ES (occurrence: ES)
  Receive Date: 20130520
  Receipt Date: 20130520
  Transmission Date: 20140414
  Serious: Yes (Hospitalization, Other)
  Sender: FDA-Public Use
  Company Number: ES-ROCHE-1226370

PATIENT
  Age: 55 Year
  Sex: Male
  Weight: 51 kg

DRUGS (9)
  1. RIBAVIRIN [Suspect]
     Indication: HEPATITIS C
     Dosage: DAILY
     Route: 048
     Dates: start: 20130204, end: 20130312
  2. RIBAVIRIN [Suspect]
     Dosage: DAILY
     Route: 048
     Dates: start: 20130318, end: 20130410
  3. RIBAVIRIN [Suspect]
     Dosage: DAILY
     Route: 048
     Dates: start: 20130410
  4. SOFOSBUVIR [Suspect]
     Indication: HEPATITIS C
     Dosage: DAILY
     Route: 048
     Dates: start: 20130204
  5. SPIRONOLACTONE [Concomitant]
  6. FUROSEMIDE [Concomitant]
  7. TACROLIMUS [Concomitant]
  8. MYFORTIC [Concomitant]
  9. LAMIVUDINE [Concomitant]

REACTIONS (5)
  - Anaemia [Recovered/Resolved]
  - Steatorrhoea [Recovered/Resolved]
  - Cytomegalovirus gastritis [Recovered/Resolved]
  - Cardiac failure congestive [Recovered/Resolved]
  - Hepatic encephalopathy [Recovered/Resolved]
